FAERS Safety Report 9229552 (Version 2)
Quarter: 2014Q1

REPORT INFORMATION
  Report Type: Spontaneous
  Country: US (occurrence: US)
  Receive Date: 20130413
  Receipt Date: 20140331
  Transmission Date: 20141002
  Serious: Yes (Hospitalization)
  Sender: FDA-Public Use
  Company Number: US-B.I. PHARMACEUTICALS,INC./RIDGEFIELD-2013-BI-09601BP

PATIENT
  Sex: Male
  Weight: 96 kg

DRUGS (4)
  1. PRADAXA [Suspect]
     Indication: ATRIAL FIBRILLATION
     Route: 065
     Dates: start: 201103, end: 201104
  2. PRADAXA [Suspect]
     Route: 065
     Dates: start: 20110408
  3. LOTREL [Concomitant]
     Route: 065
     Dates: start: 2008, end: 2011
  4. CORZIDE [Concomitant]
     Route: 065
     Dates: start: 2008, end: 2011

REACTIONS (2)
  - Gastrointestinal haemorrhage [Unknown]
  - Respiratory failure [Unknown]
